FAERS Safety Report 14418574 (Version 2)
Quarter: 2018Q1

REPORT INFORMATION
  Report Type: Spontaneous
  Country: FR (occurrence: FR)
  Receive Date: 20180122
  Receipt Date: 20180123
  Transmission Date: 20180509
  Serious: Yes (Hospitalization, Other)
  Sender: FDA-Public Use
  Company Number: FR-ASTRAZENECA-2018SE07371

PATIENT
  Age: 69 Year
  Sex: Male
  Weight: 88.5 kg

DRUGS (10)
  1. CANDESARTAN CILEXETIL. [Suspect]
     Active Substance: CANDESARTAN CILEXETIL
     Indication: HYPERTENSION
     Route: 048
     Dates: start: 20170428, end: 20170507
  2. GENTAMICINE [Concomitant]
     Active Substance: GENTAMICIN
     Indication: SEPSIS
     Route: 042
     Dates: start: 20170426, end: 20170427
  3. CANDESARTAN CILEXETIL. [Suspect]
     Active Substance: CANDESARTAN CILEXETIL
     Indication: HYPERTENSION
     Route: 048
     Dates: start: 20170428, end: 20170507
  4. ESIDREX [Suspect]
     Active Substance: HYDROCHLOROTHIAZIDE
     Indication: HYPERTENSION
     Dosage: 25 MG. DAILY (NON-AZ DRUG)
     Route: 048
     Dates: start: 20170504, end: 20170507
  5. MORPHINE HYDROCHLORIDE [Suspect]
     Active Substance: MORPHINE HYDROCHLORIDE
     Indication: PAIN
     Route: 048
     Dates: start: 20170502, end: 20170507
  6. RIFADINE [Suspect]
     Active Substance: RIFAMPIN
     Indication: ENDOCARDITIS
     Dosage: DAILY
     Route: 048
     Dates: start: 20170429, end: 20170508
  7. METRONIDAZOLE. [Concomitant]
     Active Substance: METRONIDAZOLE
     Indication: SEPSIS
     Dosage: 500.0MG UNKNOWN
     Route: 042
     Dates: start: 20170426, end: 20170426
  8. CEFTRIAXONE. [Concomitant]
     Active Substance: CEFTRIAXONE
     Indication: SEPSIS
     Dosage: 1.0G ONCE/SINGLE ADMINISTRATION
     Route: 058
     Dates: start: 20170426, end: 20170426
  9. CLOXACILLIN [Suspect]
     Active Substance: CLOXACILLIN
     Indication: ENDOCARDITIS
     Route: 042
     Dates: start: 20170427, end: 20170507
  10. VANCOMYCIN HYDROCHLORIDE. [Concomitant]
     Active Substance: VANCOMYCIN HYDROCHLORIDE
     Indication: SEPSIS
     Dosage: 2500.0MG UNKNOWN
     Route: 042
     Dates: start: 20170426, end: 20170427

REACTIONS (2)
  - Acute kidney injury [Recovering/Resolving]
  - Exfoliative rash [Recovered/Resolved]

NARRATIVE: CASE EVENT DATE: 20170507
